FAERS Safety Report 9286261 (Version 1)
Quarter: 2013Q2

REPORT INFORMATION
  Report Type: Spontaneous
  Country: IT (occurrence: IT)
  Receive Date: 20130513
  Receipt Date: 20130513
  Transmission Date: 20140414
  Serious: Yes (Life-Threatening)
  Sender: FDA-Public Use
  Company Number: IT-GLAXOSMITHKLINE-B0890929A

PATIENT
  Age: 59 Year
  Sex: Male

DRUGS (4)
  1. ZANTAC [Suspect]
     Indication: PRODUCT USED FOR UNKNOWN INDICATION
     Dosage: 50MG PER DAY
     Route: 042
     Dates: start: 20130219, end: 20130219
  2. KETOROLAC 30 MG [Suspect]
     Indication: PAIN
     Dosage: 30MG PER DAY
     Route: 042
     Dates: start: 20130219, end: 20130219
  3. TACHIPIRINA [Suspect]
     Indication: PAIN
     Dosage: 1G PER DAY
     Route: 042
     Dates: start: 20130219, end: 20130219
  4. PLASIL [Suspect]
     Indication: VOMITING
     Dosage: 10MG PER DAY
     Route: 042
     Dates: start: 20130219, end: 20130219

REACTIONS (4)
  - Anaphylactic shock [Recovered/Resolved]
  - Hypotension [Recovered/Resolved]
  - Urticaria [Recovered/Resolved]
  - Angioedema [Recovered/Resolved]
